FAERS Safety Report 9306757 (Version 2)
Quarter: 2014Q2

REPORT INFORMATION
  Report Type: Report from Study
  Country: US (occurrence: US)
  Receive Date: 20130523
  Receipt Date: 20140508
  Transmission Date: 20141212
  Serious: No
  Sender: FDA-Public Use
  Company Number: US-ALEXION-A201301066

PATIENT
  Sex: Female

DRUGS (3)
  1. PROGRAF [Concomitant]
     Indication: TRANSPLANT
     Dosage: UNK
  2. SOLIRIS [Suspect]
     Indication: HAEMOLYTIC URAEMIC SYNDROME
     Dosage: UNK
     Route: 042
  3. CYCLOSPORINE [Concomitant]
     Indication: TRANSPLANT
     Dosage: UNK

REACTIONS (6)
  - Drug ineffective [Unknown]
  - Vision blurred [Unknown]
  - Headache [Unknown]
  - Oropharyngeal pain [Unknown]
  - Epistaxis [Not Recovered/Not Resolved]
  - Vomiting [Recovered/Resolved]
